FAERS Safety Report 13648413 (Version 1)
Quarter: 2017Q2

REPORT INFORMATION
  Report Type: Spontaneous
  Country: US (occurrence: US)
  Receive Date: 20170613
  Receipt Date: 20170613
  Transmission Date: 20170830
  Serious: No
  Sender: FDA-Public Use
  Company Number: US-ADAPT PHARMA INC-2017ADP00007

PATIENT
  Sex: Male

DRUGS (2)
  1. NARCAN [Suspect]
     Active Substance: NALOXONE HYDROCHLORIDE
     Indication: PRODUCT USED FOR UNKNOWN INDICATION
     Dosage: UNK, UNK
     Route: 045
  2. HEROIN [Suspect]
     Active Substance: DIAMORPHINE
     Dosage: UNK, UNK
     Route: 065

REACTIONS (1)
  - Drug screen negative [Unknown]

NARRATIVE: CASE EVENT DATE: 20170324
